FAERS Safety Report 8241892-8 (Version None)
Quarter: 2012Q1

REPORT INFORMATION
  Report Type: 
  Country: None (occurrence: None)
  Receive Date: 20120328
  Receipt Date: 20120320
  Transmission Date: 20120608
  Serious: Yes (Hospitalization)
  Sender: FDA-Public Use
  Company Number: US-ACTELION-A-NJ2012-61670

PATIENT

DRUGS (4)
  1. COUMADIN [Concomitant]
  2. VENTAVIS [Suspect]
     Indication: PULMONARY ARTERIAL HYPERTENSION
     Dosage: UNK
     Route: 055
     Dates: start: 20090420
  3. DIGOXIN [Concomitant]
  4. ADCIRCA [Concomitant]

REACTIONS (2)
  - LOSS OF CONSCIOUSNESS [None]
  - INFECTION [None]
